FAERS Safety Report 15322893 (Version 2)
Quarter: 2018Q3

REPORT INFORMATION
  Report Type: Spontaneous
  Country: JP (occurrence: JP)
  Receive Date: 20180827
  Receipt Date: 20180927
  Transmission Date: 20181010
  Serious: Yes (Death)
  Sender: FDA-Public Use
  Company Number: JP-JNJFOC-20180833586

PATIENT
  Age: 83 Year
  Sex: Female

DRUGS (7)
  1. XARELTO [Suspect]
     Active Substance: RIVAROXABAN
     Indication: CEREBROVASCULAR ACCIDENT PROPHYLAXIS
     Dosage: 16665 MG
     Route: 048
     Dates: start: 20150801, end: 20180815
  2. LASIX [Concomitant]
     Active Substance: FUROSEMIDE
     Route: 065
  3. PERSANTIN [Concomitant]
     Active Substance: DIPYRIDAMOLE
     Route: 065
  4. BLOPRESS [Concomitant]
     Active Substance: CANDESARTAN CILEXETIL
     Route: 065
  5. NORVASC [Concomitant]
     Active Substance: AMLODIPINE BESYLATE
     Route: 065
  6. XARELTO [Suspect]
     Active Substance: RIVAROXABAN
     Indication: ATRIAL FIBRILLATION
     Dosage: 16665 MG
     Route: 048
     Dates: start: 20150801, end: 20180815
  7. ALDACTONE A [Concomitant]
     Active Substance: SPIRONOLACTONE
     Route: 065

REACTIONS (4)
  - Fall [Fatal]
  - Asthenia [Fatal]
  - Arrhythmia [Fatal]
  - Traumatic fracture [Fatal]

NARRATIVE: CASE EVENT DATE: 20180815
